FAERS Safety Report 5479059-9 (Version None)
Quarter: 2007Q4

REPORT INFORMATION
  Report Type: 
  Country: None (occurrence: None)
  Receive Date: 20071006
  Receipt Date: 20070926
  Transmission Date: 20080405
  Serious: Yes (Life-Threatening, Hospitalization, Disabling, Other)
  Sender: FDA-Public Use
  Company Number: US-PFIZER INC-2007081223

PATIENT
  Sex: Male
  Weight: 86.363 kg

DRUGS (5)
  1. LIPITOR [Suspect]
     Indication: BLOOD CHOLESTEROL INCREASED
     Dates: start: 20030101, end: 20050501
  2. TYLENOL W/ CODEINE NO. 4 [Concomitant]
  3. ALL OTHER THERAPEUTIC PRODUCTS [Concomitant]
  4. ADVAIR DISKUS 100/50 [Concomitant]
  5. ACETYLSALICYLIC ACID [Concomitant]

REACTIONS (19)
  - ABASIA [None]
  - BEDRIDDEN [None]
  - CEREBROVASCULAR ACCIDENT [None]
  - COGNITIVE DISORDER [None]
  - DIPLEGIA [None]
  - DYSPNOEA [None]
  - HYPERAESTHESIA [None]
  - IMPAIRED DRIVING ABILITY [None]
  - INFLUENZA LIKE ILLNESS [None]
  - INSOMNIA [None]
  - LIVER DISORDER [None]
  - LUNG DISORDER [None]
  - MALAISE [None]
  - MEMORY IMPAIRMENT [None]
  - PAIN [None]
  - PAIN IN EXTREMITY [None]
  - RENAL FAILURE ACUTE [None]
  - SWELLING [None]
  - UNEVALUABLE EVENT [None]
